FAERS Safety Report 6902511-3 (Version None)
Quarter: 2010Q3

REPORT INFORMATION
  Report Type: 
  Country: None (occurrence: None)
  Receive Date: 20100730
  Receipt Date: 20100719
  Transmission Date: 20110219
  Serious: Yes (Hospitalization)
  Sender: FDA-Public Use
  Company Number: 644584

PATIENT
  Age: 3 Year
  Sex: Male
  Weight: 13 kg

DRUGS (13)
  1. VINCRISTINE SULPHATE INJECTION, USP (VINCRISTINE SULFATE) [Suspect]
     Indication: PRODUCT USED FOR UNKNOWN INDICATION
     Dosage: 0.9 MILLIGRAM, CYCLICAL
  2. CEFAZOLIN [Concomitant]
  3. CODEINE SULFATE [Concomitant]
  4. (COSMEGEN /00102201/) [Concomitant]
  5. DIMENHYDRINATE [Concomitant]
  6. DOXORUBICIN HC1 FOR INJECTION, USP (DOXORUBICIN HYDROCHLORIDE) [Concomitant]
  7. GENTAMICIN SULFATE IN 0.9% SODIUM CHLORIDE INJECTION; SOLUTION (GENTAM [Concomitant]
  8. METOCLOPRAMIDE [Concomitant]
  9. MORPHINE SULFATE 1MG/ML (MORPHINE SULFATE) [Concomitant]
  10. ONDANSETRON [Concomitant]
  11. SULFAMETHOXAZOLE AND TRIMETHOPRIM [Concomitant]
  12. (TIMENTIN /00703201/) [Concomitant]
  13. TOBRAMYCIN [Concomitant]

REACTIONS (3)
  - ABDOMINAL PAIN [None]
  - FAECALOMA [None]
  - LIVER DISORDER [None]
